FAERS Safety Report 4956765-3 (Version None)
Quarter: 2006Q1

REPORT INFORMATION
  Report Type: 
  Country: None (occurrence: None)
  Receive Date: 20060329
  Receipt Date: 20051128
  Transmission Date: 20060701
  Serious: Yes (Hospitalization)
  Sender: FDA-Public Use
  Company Number: JP-ROCHE-426891

PATIENT
  Age: 36 Year
  Sex: Female
  Weight: 53 kg

DRUGS (18)
  1. TAMIFLU [Suspect]
     Indication: INFLUENZA
     Route: 048
     Dates: start: 20050125
  2. INTEBAN [Suspect]
     Indication: PYREXIA
     Dosage: DOSE FORM: RECTAL SUPPOSITORY
     Route: 054
     Dates: start: 20050125
  3. AZANIN [Concomitant]
     Route: 048
     Dates: start: 20010418
  4. PREDONINE [Concomitant]
     Route: 048
     Dates: start: 20010418
  5. NEORAL [Concomitant]
     Route: 048
     Dates: start: 20010418
  6. ISODINE [Concomitant]
     Dosage: ROUTE: OROPHARINGEAL FORM: GARGLE
     Route: 050
     Dates: start: 20010418
  7. URINORM [Concomitant]
     Dosage: TWO THERAPIES FROM 13 MAR 2002 AT 50 MG ONCE PER DAY AND FROM 16 FEB 2006 AT 25 MG ONCE A DAY.
     Route: 048
     Dates: start: 20020313
  8. GASTER [Concomitant]
     Dosage: FROM 16 FEB 2005 THERAPY INCREASED TO 20 MG ONCE A DAY.
     Route: 048
     Dates: start: 20030220
  9. PONTAL [Concomitant]
     Dosage: FORM: ORAL FORMULATION NOT OTHERWISE SPECIFIED
     Route: 048
  10. BIOFERMIN [Concomitant]
     Route: 048
     Dates: start: 20050127
  11. TANNALBIN [Concomitant]
     Route: 048
     Dates: start: 20050127, end: 20050130
  12. PRIMPERAN TAB [Concomitant]
     Route: 048
     Dates: start: 20050127, end: 20050130
  13. RESCULA [Concomitant]
     Route: 031
     Dates: start: 20050127, end: 20050202
  14. RISPERDAL [Concomitant]
     Route: 048
     Dates: start: 20050131, end: 20050202
  15. CYANOCOBALAMIN [Concomitant]
     Route: 048
     Dates: start: 20050205
  16. CERCINE [Concomitant]
     Route: 048
     Dates: start: 20050215
  17. DEPROMEL [Concomitant]
     Route: 048
     Dates: start: 20050215
  18. FLOMOX [Concomitant]
     Route: 048
     Dates: start: 20050222, end: 20050227

REACTIONS (7)
  - DEHYDRATION [None]
  - DIARRHOEA [None]
  - FEELING ABNORMAL [None]
  - MUSCULOSKELETAL STIFFNESS [None]
  - PSYCHIATRIC SYMPTOM [None]
  - RENAL FAILURE ACUTE [None]
  - TREMOR [None]
